FAERS Safety Report 9881052 (Version 1)
Quarter: 2014Q1

REPORT INFORMATION
  Report Type: Spontaneous
  Country: PT (occurrence: PT)
  Receive Date: 20140207
  Receipt Date: 20140207
  Transmission Date: 20141002
  Serious: Yes (Other)
  Sender: FDA-Public Use
  Company Number: PT-ASTELLAS-2014EU000905

PATIENT
  Age: 56 Year
  Sex: Male

DRUGS (4)
  1. TACROLIMUS SYSTEMIC [Suspect]
     Indication: IMMUNOSUPPRESSION
     Dosage: UNK
     Route: 065
  2. BASILIXIMAB [Suspect]
     Indication: IMMUNOSUPPRESSION
     Dosage: UNK
     Route: 065
  3. MYCOPHENOLATE MOFETIL [Suspect]
     Indication: IMMUNOSUPPRESSION
     Dosage: UNK
     Route: 065
  4. PREDNISOLONE [Suspect]
     Indication: IMMUNOSUPPRESSION
     Dosage: UNK
     Route: 065

REACTIONS (8)
  - Retroperitoneal haematoma [Recovered/Resolved]
  - Retroperitoneal infection [Recovered/Resolved]
  - Wound infection pseudomonas [Recovered/Resolved]
  - Oropharyngeal candidiasis [Recovered/Resolved]
  - Complications of transplanted kidney [Unknown]
  - Transplant rejection [Unknown]
  - Sepsis [Recovered/Resolved]
  - Cryptococcosis [Recovered/Resolved]
